FAERS Safety Report 23158182 (Version 2)
Quarter: 2023Q4

REPORT INFORMATION
  Report Type: Spontaneous
  Country: US (occurrence: US)
  Receive Date: 20231108
  Receipt Date: 20231116
  Transmission Date: 20240110
  Serious: No
  Sender: FDA-Public Use
  Company Number: US-OPELLA-2023OHG012089

PATIENT

DRUGS (2)
  1. ACT RESTORING ANTICAVITY FLUORIDE COOL MINT [Suspect]
     Active Substance: SODIUM FLUORIDE
     Indication: Product used for unknown indication
     Route: 048
  2. ACT DRY MOUTH SOOTHING MINT [Suspect]
     Active Substance: SODIUM FLUORIDE
     Indication: Product used for unknown indication

REACTIONS (1)
  - Oral discomfort [Unknown]
